FAERS Safety Report 13369335 (Version 1)
Quarter: 2017Q1

REPORT INFORMATION
  Report Type: Spontaneous
  Country: US (occurrence: US)
  Receive Date: 20170324
  Receipt Date: 20170324
  Transmission Date: 20170429
  Serious: No
  Sender: FDA-Public Use
  Company Number: US-ASTRAZENECA-2017SE27536

PATIENT
  Sex: Female
  Weight: 167.4 kg

DRUGS (15)
  1. TYLENOL [Concomitant]
     Active Substance: ACETAMINOPHEN
     Indication: ARTHRALGIA
     Dosage: AS NEEDED
  2. GLIMEPIRIDE. [Concomitant]
     Active Substance: GLIMEPIRIDE
     Indication: TYPE 2 DIABETES MELLITUS
  3. SPIRONOLACTONE. [Concomitant]
     Active Substance: SPIRONOLACTONE
     Indication: DIURETIC THERAPY
  4. IBUPROFEN. [Concomitant]
     Active Substance: IBUPROFEN
     Indication: ARTHRALGIA
     Dosage: 800.0MG AS REQUIRED
  5. ONGLYZA [Suspect]
     Active Substance: SAXAGLIPTIN HYDROCHLORIDE
     Indication: TYPE 2 DIABETES MELLITUS
     Dosage: 2.5 IN THE MORNING AND 5MG IN THE EVENING, TWO TIMES A DAY
     Route: 048
  6. VITAMIN B COMPLEX [Concomitant]
     Active Substance: CYANOCOBALAMIN\DEXPANTHENOL\NIACINAMIDE\PYRIDOXINE HYDROCHLORIDE\RIBOFLAVIN 5^-PHOSPHATE SODIUM\THIAMINE HYDROCHLORIDE\VITAMIN B COMPLEX
     Indication: ASTHENIA
  7. CALCIUM CITRATE [Concomitant]
     Active Substance: CALCIUM CITRATE
  8. VITAMIN D3 [Concomitant]
     Active Substance: CHOLECALCIFEROL
     Indication: VITAMIN D DECREASED
  9. VITAMINS NOS [Concomitant]
     Active Substance: VITAMINS
     Dosage: DAILY
  10. VITAMIN B COMPLEX [Concomitant]
     Active Substance: CYANOCOBALAMIN\DEXPANTHENOL\NIACINAMIDE\PYRIDOXINE HYDROCHLORIDE\RIBOFLAVIN 5^-PHOSPHATE SODIUM\THIAMINE HYDROCHLORIDE\VITAMIN B COMPLEX
     Indication: STRESS
  11. ASPIRIN. [Concomitant]
     Active Substance: ASPIRIN
  12. FENOFIBRATE. [Concomitant]
     Active Substance: FENOFIBRATE
     Indication: BLOOD TRIGLYCERIDES ABNORMAL
     Dosage: DAILY
  13. VICTOZA [Concomitant]
     Active Substance: LIRAGLUTIDE
     Dosage: 2.6 MG IN THE MORNING AND 1.2 IN THE EVENING
  14. GLUMETZA [Concomitant]
     Active Substance: METFORMIN HYDROCHLORIDE
  15. INOSITOL [Concomitant]
     Active Substance: INOSITOL
     Indication: SUPPLEMENTATION THERAPY

REACTIONS (5)
  - Pancreatitis [Recovered/Resolved]
  - Diabetes mellitus inadequate control [Unknown]
  - Arrhythmia [Recovered/Resolved]
  - Intentional product misuse [Recovered/Resolved]
  - Tachycardia [Recovered/Resolved]
